FAERS Safety Report 14669075 (Version 3)
Quarter: 2018Q2

REPORT INFORMATION
  Report Type: Spontaneous
  Country: DE (occurrence: DE)
  Receive Date: 20180322
  Receipt Date: 20180518
  Transmission Date: 20180711
  Serious: Yes (Other)
  Sender: FDA-Public Use
  Company Number: DE-B.I. PHARMACEUTICALS,INC./RIDGEFIELD-2018-BI-015805

PATIENT
  Age: 54 Year
  Sex: Female
  Weight: 83 kg

DRUGS (5)
  1. JARDIANCE [Suspect]
     Active Substance: EMPAGLIFLOZIN
     Indication: TYPE 2 DIABETES MELLITUS
     Route: 048
     Dates: start: 201710, end: 201803
  2. L THYROXIN [Concomitant]
     Active Substance: LEVOTHYROXINE SODIUM
     Indication: HYPERTHYROIDISM
     Dosage: STRENGTH: 75
     Route: 048
     Dates: start: 2012
  3. SYMBICORT [Concomitant]
     Active Substance: BUDESONIDE\FORMOTEROL FUMARATE DIHYDRATE
     Indication: PRODUCT USED FOR UNKNOWN INDICATION
     Route: 065
     Dates: start: 2012
  4. METFORMIN [Concomitant]
     Active Substance: METFORMIN HYDROCHLORIDE
     Indication: TYPE 2 DIABETES MELLITUS
     Route: 048
     Dates: start: 201206
  5. TELMISARTAN HCT [Concomitant]
     Indication: HYPERTENSION
     Dosage: STRENGTH AND DAILY DOSE: 80/12.5
     Route: 048
     Dates: start: 201506

REACTIONS (2)
  - Renal cell carcinoma [Unknown]
  - Haematuria [Unknown]

NARRATIVE: CASE EVENT DATE: 20180305
